FAERS Safety Report 18871525 (Version 1)
Quarter: 2021Q1

REPORT INFORMATION
  Report Type: Spontaneous
  Country: US (occurrence: US)
  Receive Date: 20210209
  Receipt Date: 20210209
  Transmission Date: 20210420
  Serious: No
  Sender: FDA-Public Use
  Company Number: None

PATIENT
  Age: 45 Year
  Sex: Female

DRUGS (10)
  1. VITAMIN D3 [Concomitant]
     Active Substance: CHOLECALCIFEROL
  2. IRON [Concomitant]
     Active Substance: IRON
  3. NITROFURANTOIN. [Suspect]
     Active Substance: NITROFURANTOIN
  4. ASHWAGANDHA [Concomitant]
     Active Substance: HERBALS
  5. CALCIUM [Concomitant]
     Active Substance: CALCIUM
  6. VITIAMIN B2 [Concomitant]
  7. XIFAXAN [Suspect]
     Active Substance: RIFAXIMIN
  8. ALPHA LIPOIC ACID [Concomitant]
     Active Substance: .ALPHA.-LIPOIC ACID
  9. VITAMIN B12 [Concomitant]
     Active Substance: CYANOCOBALAMIN
  10. OMEPRAZOLE. [Concomitant]
     Active Substance: OMEPRAZOLE

REACTIONS (8)
  - Gastrointestinal disorder [None]
  - Nocturia [None]
  - Musculoskeletal stiffness [None]
  - Hypoaesthesia [None]
  - Urinary tract infection [None]
  - Gastrointestinal bacterial overgrowth [None]
  - Peripheral swelling [None]
  - Abdominal pain lower [None]

NARRATIVE: CASE EVENT DATE: 20201112
